FAERS Safety Report 8964068 (Version 1)
Quarter: 2012Q4

REPORT INFORMATION
  Report Type: 
  Country: US (occurrence: US)
  Receive Date: 20121213
  Receipt Date: 20121213
  Transmission Date: 20130627
  Serious: Yes (Other)
  Sender: FDA-Public Use
  Company Number: US-GLAXOSMITHKLINE-A1004369A

PATIENT
  Sex: Male

DRUGS (5)
  1. LAMICTAL XR [Suspect]
     Indication: CONVULSION
     Dosage: 200MG Twice per day
     Route: 048
     Dates: start: 2008
  2. SUDAFED [Concomitant]
  3. MUCINEX [Concomitant]
  4. TRIAMCINOLONE ACETONIDE [Concomitant]
     Route: 045
  5. CIPROFLOXACIN [Concomitant]

REACTIONS (3)
  - Convulsion [Recovering/Resolving]
  - Haematuria [Recovering/Resolving]
  - Penis disorder [Recovering/Resolving]
